FAERS Safety Report 6517598-X (Version None)
Quarter: 2009Q4

REPORT INFORMATION
  Report Type: 
  Country: None (occurrence: None)
  Receive Date: 20091224
  Receipt Date: 20091214
  Transmission Date: 20100525
  Serious: Yes (Hospitalization, Other)
  Sender: FDA-Public Use
  Company Number: PHHY2009JP31281

PATIENT
  Sex: Male
  Weight: 16 kg

DRUGS (9)
  1. AREDIA [Suspect]
     Indication: LANGERHANS' CELL HISTIOCYTOSIS
     Dosage: 15 MG (FOR 3 SUCCESSIVE DAYS EVERY 4 WEEKS)
     Route: 042
     Dates: start: 20090529
  2. AREDIA [Interacting]
     Dosage: 30 MG (FOR 3 SUCCESSIVE DAYS EVERY 4 WEEKS)
     Route: 042
  3. GASTER [Concomitant]
     Indication: PROPHYLAXIS
     Dosage: 25 MG, UNK
     Route: 048
     Dates: start: 20060410, end: 20091021
  4. BAKTAR [Concomitant]
     Indication: INFECTION PROPHYLAXIS
     Dosage: 0.7 MG, UNK
     Route: 048
     Dates: start: 20060410
  5. PREDONINE [Concomitant]
     Indication: LANGERHANS' CELL HISTIOCYTOSIS
     Dosage: 1 MG, UNK
     Route: 048
     Dates: start: 20060410, end: 20090810
  6. ISCOTIN [Interacting]
     Indication: EAR TUBERCULOSIS
     Dosage: 240 G, UNK
     Route: 048
     Dates: start: 20090603
  7. RIFADIN [Interacting]
     Indication: EAR TUBERCULOSIS
     Dosage: 240 G, UNK
     Route: 048
     Dates: start: 20090603
  8. PYRAMIDE [Interacting]
     Indication: EAR TUBERCULOSIS
     Dosage: 0.3 G, UNK
     Route: 048
     Dates: start: 20090603, end: 20090804
  9. ADEROXAL [Concomitant]
     Indication: PROPHYLAXIS
     Dosage: 10 MG, UNK
     Route: 048
     Dates: start: 20090603

REACTIONS (13)
  - BLOOD ALKALINE PHOSPHATASE INCREASED [None]
  - BLOOD CREATININE DECREASED [None]
  - BLOOD LACTATE DEHYDROGENASE INCREASED [None]
  - DRUG INTERACTION [None]
  - GAIT DISTURBANCE [None]
  - HAEMATOCRIT DECREASED [None]
  - HAEMOGLOBIN DECREASED [None]
  - HYPOGLYCAEMIA [None]
  - NAUSEA [None]
  - PALLOR [None]
  - RED BLOOD CELL COUNT DECREASED [None]
  - URINE KETONE BODY PRESENT [None]
  - WHITE BLOOD CELL COUNT INCREASED [None]
